FAERS Safety Report 22109174 (Version 1)
Quarter: 2023Q1

REPORT INFORMATION
  Report Type: Spontaneous
  Country: FR (occurrence: FR)
  Receive Date: 20230317
  Receipt Date: 20230317
  Transmission Date: 20230417
  Serious: Yes (Life-Threatening, Other)
  Sender: FDA-Public Use
  Company Number: FR-SA-SAC20230216000056

PATIENT
  Age: 48 Year
  Sex: Female

DRUGS (1)
  1. ACETAMINOPHEN [Suspect]
     Active Substance: ACETAMINOPHEN
     Indication: Headache
     Dosage: 1 GRAM
     Route: 065

REACTIONS (11)
  - Anaphylactic reaction [Unknown]
  - Angioedema [Unknown]
  - Selective eating disorder [Unknown]
  - Loss of personal independence in daily activities [Unknown]
  - Tachycardia [Unknown]
  - Salivary hypersecretion [Unknown]
  - Dysphagia [Unknown]
  - Abdominal pain upper [Unknown]
  - Erythema [Unknown]
  - Pruritus [Unknown]
  - Urticaria [Unknown]
